FAERS Safety Report 11628100 (Version 4)
Quarter: 2016Q1

REPORT INFORMATION
  Report Type: Spontaneous
  Country: IT (occurrence: IT)
  Receive Date: 20151014
  Receipt Date: 20160223
  Transmission Date: 20160525
  Serious: Yes (Other)
  Sender: FDA-Public Use
  Company Number: IT-ROCHE-1645057

PATIENT
  Age: 57 Year
  Sex: Female

DRUGS (5)
  1. OLYSIO [Suspect]
     Active Substance: SIMEPREVIR
     Indication: HEPATITIS C
     Dosage: 150 MG BLISTER PACK (PVC/PE/PVDC/AL) - 28 CAPSULES
     Route: 048
  2. SOVALDI [Suspect]
     Active Substance: SOFOSBUVIR
     Indication: HEPATITIS C
     Dosage: 400 MG - BLISTER PACK (PVC/PE/PVDC/AL) - 28 CAPSULE
     Route: 048
  3. ZOLOFT [Concomitant]
     Active Substance: SERTRALINE HYDROCHLORIDE
  4. RIBAVIRIN. [Suspect]
     Active Substance: RIBAVIRIN
     Indication: HEPATITIS C
     Route: 048
  5. HALDOL [Concomitant]
     Active Substance: HALOPERIDOL

REACTIONS (2)
  - Viral load increased [Unknown]
  - Hepatitis C [Unknown]
